FAERS Safety Report 9703013 (Version 1)
Quarter: 2013Q4

REPORT INFORMATION
  Report Type: Spontaneous
  Country: US (occurrence: US)
  Receive Date: 20131122
  Receipt Date: 20131122
  Transmission Date: 20140711
  Serious: No
  Sender: FDA-Public Use
  Company Number: US-009507513-1311USA008205

PATIENT
  Sex: 0

DRUGS (1)
  1. INTEGRILIN [Suspect]
     Dosage: UNK
     Route: 042
     Dates: start: 20131118

REACTIONS (1)
  - Infusion site extravasation [Unknown]
